FAERS Safety Report 16060375 (Version 2)
Quarter: 2019Q1

REPORT INFORMATION
  Report Type: Report from Study
  Country: US (occurrence: US)
  Receive Date: 20190312
  Receipt Date: 20190319
  Transmission Date: 20190418
  Serious: Yes (Hospitalization)
  Sender: FDA-Public Use
  Company Number: US-ROCHE-2276958

PATIENT
  Age: 72 Year
  Sex: Male
  Weight: 69.4 kg

DRUGS (15)
  1. CABOZANTINIB S-MALATE [Suspect]
     Active Substance: CABOZANTINIB S-MALATE
     Indication: HORMONE-REFRACTORY PROSTATE CANCER
     Dosage: MOST RECENT DOSE OF CABOZANTINIB PRIOR TO AE ONSET: 19/FEB/2019.
     Route: 048
     Dates: start: 20181205
  2. ASPIRIN. [Concomitant]
     Active Substance: ASPIRIN
  3. ZOFRAN [Concomitant]
     Active Substance: ONDANSETRON HYDROCHLORIDE
  4. FLOMAX [Concomitant]
     Active Substance: TAMSULOSIN HYDROCHLORIDE
  5. FINASTERIDE. [Concomitant]
     Active Substance: FINASTERIDE
  6. GLYCOLAX [Concomitant]
     Active Substance: POLYETHYLENE GLYCOL 3350
  7. MIRALAX [Concomitant]
     Active Substance: POLYETHYLENE GLYCOL 3350
  8. ATORVASTATIN [Concomitant]
     Active Substance: ATORVASTATIN
  9. VITAMIN D3 [Concomitant]
     Active Substance: CHOLECALCIFEROL
  10. IBUPROFEN. [Concomitant]
     Active Substance: IBUPROFEN
  11. RANITIDINE HCL [Concomitant]
     Active Substance: RANITIDINE HYDROCHLORIDE
  12. ATEZOLIZUMAB. [Suspect]
     Active Substance: ATEZOLIZUMAB
     Indication: HORMONE-REFRACTORY PROSTATE CANCER
     Dosage: MOST RECENT DOSE OF ATEZOLIZUMAB PRIOR TO AE ONSET: 07/FEB/2019
     Route: 042
     Dates: start: 20181205
  13. LOPRESSOR [Concomitant]
     Active Substance: METOPROLOL TARTRATE
  14. LISINOPRIL. [Concomitant]
     Active Substance: LISINOPRIL
  15. PERCOCET [Concomitant]
     Active Substance: ACETAMINOPHEN\OXYCODONE HYDROCHLORIDE

REACTIONS (3)
  - Acute kidney injury [Recovered/Resolved]
  - Deep vein thrombosis [Recovered/Resolved]
  - Gastrointestinal haemorrhage [Recovered/Resolved]

NARRATIVE: CASE EVENT DATE: 20190220
